FAERS Safety Report 6214400 (Version 16)
Quarter: 2020Q3

REPORT INFORMATION
  Report Type: Spontaneous
  Country: None (occurrence: GB)
  Receive Date: 20070112
  Receipt Date: 20071210
  Transmission Date: 20201105
  Serious: Yes (Life-Threatening, Hospitalization, Congenital Anomaly, Other)
  Sender: FDA-Public Use
  Company Number: GB-BOEHRINGER INGELHEIM PHARMACEUTICALS, INC.-2007-UK-00068UK

PATIENT
  Age: 0 Year
  Sex: Female
  Weight: 5 kg

DRUGS (5)
  1. FERROUS SULFATE. [Suspect]
     Active Substance: FERROUS SULFATE
  2. VIRAMUNE [Suspect]
     Active Substance: NEVIRAPINE
     Route: 064
  3. ZIDOVUDINE. [Suspect]
     Active Substance: ZIDOVUDINE
     Indication: PROPHYLAXIS AGAINST HIV INFECTION
     Route: 064
     Dates: start: 200607, end: 200608
  4. VIRAMUNE [Suspect]
     Active Substance: NEVIRAPINE
     Indication: RETROVIRAL INFECTION
     Route: 064
     Dates: start: 20050922, end: 20060509
  5. COMBIVIR [Suspect]
     Active Substance: LAMIVUDINE\ZIDOVUDINE
     Indication: HIV INFECTION
     Route: 064
     Dates: start: 200509

REACTIONS (13)
  - Depressed level of consciousness [Recovered/Resolved with Sequelae]
  - Rhinitis [Unknown]
  - Foetal growth restriction [Unknown]
  - Underweight [Recovered/Resolved with Sequelae]
  - Grunting [Unknown]
  - Lethargy [Unknown]
  - Vitamin B12 deficiency [Recovered/Resolved with Sequelae]
  - Acidosis [Unknown]
  - Eating disorder [Unknown]
  - Ammonia increased [Unknown]
  - Pallor [Unknown]
  - Methylmalonic aciduria [Recovered/Resolved with Sequelae]
  - Metabolic acidosis [Recovered/Resolved with Sequelae]

NARRATIVE: CASE EVENT DATE: 20061224
